FAERS Safety Report 5067487-5 (Version None)
Quarter: 2006Q3

REPORT INFORMATION
  Report Type: 
  Country: None (occurrence: None)
  Receive Date: 20060731
  Receipt Date: 20060712
  Transmission Date: 20061208
  Serious: Yes (Death)
  Sender: FDA-Public Use
  Company Number: US200603000326

PATIENT
  Age: 65 Year
  Sex: Male
  Weight: 108.8 kg

DRUGS (2)
  1. ZYPREXA [Suspect]
     Indication: MUSCLE SPASMS
     Dosage: 2.5 MG
     Dates: start: 20010614, end: 20020501
  2. PREDNISONE TAB [Concomitant]

REACTIONS (6)
  - CARDIAC ARREST [None]
  - CHRONIC OBSTRUCTIVE PULMONARY DISEASE [None]
  - DIABETES MELLITUS [None]
  - HYPERTENSION [None]
  - RESPIRATORY FAILURE [None]
  - WEIGHT INCREASED [None]
